FAERS Safety Report 8316435-0 (Version None)
Quarter: 2012Q2

REPORT INFORMATION
  Report Type: 
  Country: None (occurrence: None)
  Receive Date: 20120425
  Receipt Date: 20120425
  Transmission Date: 20120825
  Serious: Yes (Other)
  Sender: FDA-Public Use
  Company Number: None

PATIENT
  Sex: Male
  Weight: 79.3795 kg

DRUGS (1)
  1. BOTOX [Suspect]
     Indication: MIGRAINE
     Dosage: 5 ML EA AT AT ONCE
     Dates: start: 20110718

REACTIONS (5)
  - MALAISE [None]
  - EYELID DISORDER [None]
  - HEADACHE [None]
  - VISION BLURRED [None]
  - BEDRIDDEN [None]
